APPROVED DRUG PRODUCT: LORATADINE
Active Ingredient: LORATADINE
Strength: 10MG
Dosage Form/Route: TABLET;ORAL
Application: A208314 | Product #001
Applicant: AUROBINDO PHARMA LTD
Approved: Apr 16, 2018 | RLD: No | RS: No | Type: OTC